FAERS Safety Report 15587855 (Version 1)
Quarter: 2018Q4

REPORT INFORMATION
  Report Type: Report from Study
  Country: IN (occurrence: IN)
  Receive Date: 20181105
  Receipt Date: 20181105
  Transmission Date: 20190205
  Serious: Yes (Death, Other)
  Sender: FDA-Public Use
  Company Number: IN-BAYER-2018-200617

PATIENT
  Age: 67 Year
  Sex: Male

DRUGS (1)
  1. NEXAVAR [Suspect]
     Active Substance: SORAFENIB
     Indication: HEPATOCELLULAR CARCINOMA
     Dosage: 800 MG DAILY
     Route: 048
     Dates: end: 20181011

REACTIONS (4)
  - Hepatocellular carcinoma [None]
  - General physical health deterioration [None]
  - Renal disorder [None]
  - Death [Fatal]

NARRATIVE: CASE EVENT DATE: 20181011
